FAERS Safety Report 7806097-0 (Version None)
Quarter: 2011Q4

REPORT INFORMATION
  Report Type: 
  Country: None (occurrence: None)
  Receive Date: 20111011
  Receipt Date: 20111004
  Transmission Date: 20120403
  Serious: Yes (Other)
  Sender: FDA-Public Use
  Company Number: US-PFIZER INC-2011237715

PATIENT
  Sex: Female

DRUGS (3)
  1. PREMARIN [Suspect]
  2. ALLEGRA [Suspect]
     Dosage: UNK
  3. SOY ISOFLAVONES [Concomitant]

REACTIONS (1)
  - BREAST CANCER [None]
